FAERS Safety Report 6474604-9 (Version None)
Quarter: 2009Q4

REPORT INFORMATION
  Report Type: 
  Country: None (occurrence: None)
  Receive Date: 20091204
  Receipt Date: 20090117
  Transmission Date: 20100525
  Serious: No
  Sender: FDA-Public Use
  Company Number: US-ELI_LILLY_AND_COMPANY-US200901003314

PATIENT
  Sex: Female

DRUGS (4)
  1. CYMBALTA [Suspect]
     Dosage: 30 MG, UNK
     Dates: start: 20081218, end: 20081223
  2. CYMBALTA [Suspect]
     Dosage: 30 MG, UNK
     Dates: start: 20090114
  3. COUMADIN [Concomitant]
     Indication: THROMBOSIS
     Dosage: 6 MG, UNK
     Dates: start: 20080601, end: 20081223
  4. COUMADIN [Concomitant]
     Dosage: 5.5 MG, UNK
     Dates: start: 20081225

REACTIONS (2)
  - INTERNATIONAL NORMALISED RATIO INCREASED [None]
  - PROTHROMBIN TIME PROLONGED [None]
